FAERS Safety Report 6419408-8 (Version None)
Quarter: 2009Q4

REPORT INFORMATION
  Report Type: 
  Country: None (occurrence: None)
  Receive Date: 20091029
  Receipt Date: 20091020
  Transmission Date: 20100525
  Serious: Yes (Disabling, Other)
  Sender: FDA-Public Use
  Company Number: DE-BAYER-DE-2007-023747

PATIENT
  Age: 70 Year
  Sex: Female
  Weight: 110 kg

DRUGS (7)
  1. MAGNEVIST [Suspect]
     Indication: NUCLEAR MAGNETIC RESONANCE IMAGING
     Dosage: UNIT DOSE: 20 ML
     Route: 042
     Dates: start: 20040819, end: 20040819
  2. MAGNEVIST [Suspect]
     Dosage: UNK, 1 DOSE
     Route: 042
     Dates: start: 20040903, end: 20040903
  3. MAGNEVIST [Suspect]
     Dosage: UNIT DOSE: 21 ML
     Route: 042
     Dates: start: 20040924, end: 20040924
  4. MAGNEVIST [Suspect]
     Dosage: UNIT DOSE: 33 ML
     Route: 042
     Dates: start: 20050107, end: 20050107
  5. MAGNEVIST [Suspect]
     Dosage: UNIT DOSE: 20 ML
     Route: 042
     Dates: start: 20041216, end: 20041216
  6. GADOLINIUM DIETHYLENETRIAMINEPENTAACETIC ACID (GD-DTPA) [Suspect]
     Indication: NUCLEAR MAGNETIC RESONANCE IMAGING
     Dates: start: 20040101, end: 20040101
  7. MULTIHANCE [Suspect]
     Indication: NUCLEAR MAGNETIC RESONANCE IMAGING ABDOMINAL
     Dosage: UNIT DOSE: 20 ML
     Route: 042
     Dates: start: 20040917, end: 20040917

REACTIONS (5)
  - FIBROSIS [None]
  - JOINT CONTRACTURE [None]
  - NEPHROGENIC SYSTEMIC FIBROSIS [None]
  - PAIN IN EXTREMITY [None]
  - SKIN INDURATION [None]
